FAERS Safety Report 9779435 (Version 1)
Quarter: 2013Q4

REPORT INFORMATION
  Report Type: Spontaneous
  Country: CH (occurrence: CH)
  Receive Date: 20131223
  Receipt Date: 20131223
  Transmission Date: 20140711
  Serious: Yes (Life-Threatening, Hospitalization)
  Sender: FDA-Public Use
  Company Number: CH-ELI_LILLY_AND_COMPANY-CH201312007397

PATIENT
  Age: 49 Year
  Sex: Male

DRUGS (6)
  1. ZYPREXA [Suspect]
     Indication: RESTLESSNESS
     Dosage: 5 MG, UNKNOWN
     Route: 048
     Dates: start: 20130802, end: 20130816
  2. ZYPREXA [Suspect]
     Indication: AGITATION
  3. MEROPENEM [Concomitant]
     Indication: STREPTOCOCCAL INFECTION
     Dosage: UNK UNK, UNKNOWN
     Route: 065
     Dates: start: 20130727, end: 20130806
  4. PIPERACILLIN W/TAZOBACTAM [Concomitant]
     Indication: STREPTOCOCCAL INFECTION
     Dosage: UNK UNK, UNKNOWN
     Route: 065
     Dates: start: 20130731, end: 20130806
  5. NEXIUM [Concomitant]
     Indication: PRODUCT USED FOR UNKNOWN INDICATION
     Dosage: 40 MG, QD
     Route: 048
  6. CLEXANE [Concomitant]
     Indication: PRODUCT USED FOR UNKNOWN INDICATION
     Dosage: 40 MG, QD
     Route: 058

REACTIONS (6)
  - Neuroleptic malignant syndrome [Unknown]
  - Cogwheel rigidity [Recovered/Resolved]
  - Tachycardia [Recovered/Resolved]
  - Pyrexia [Recovered/Resolved]
  - Hyporeflexia [Unknown]
  - Musculoskeletal stiffness [Unknown]
